FAERS Safety Report 5718631-5 (Version None)
Quarter: 2008Q2

REPORT INFORMATION
  Report Type: 
  Country: None (occurrence: None)
  Receive Date: 20080425
  Receipt Date: 20080414
  Transmission Date: 20081010
  Serious: Yes (Other)
  Sender: FDA-Public Use
  Company Number: US-PFIZER INC-2008030816

PATIENT
  Sex: Female
  Weight: 63.1 kg

DRUGS (4)
  1. ZOLOFT [Suspect]
     Indication: GENERALISED ANXIETY DISORDER
  2. CHANTIX [Suspect]
     Indication: SMOKING CESSATION THERAPY
     Dates: start: 20080327, end: 20080101
  3. LEVOTHYROXINE SODIUM [Concomitant]
  4. VIVELLE [Concomitant]
     Route: 062

REACTIONS (3)
  - DRUG WITHDRAWAL SYNDROME [None]
  - SUICIDAL BEHAVIOUR [None]
  - SUICIDAL IDEATION [None]
